FAERS Safety Report 13155876 (Version 1)
Quarter: 2017Q1

REPORT INFORMATION
  Report Type: Spontaneous
  Country: US (occurrence: US)
  Receive Date: 20170126
  Receipt Date: 20170126
  Transmission Date: 20170428
  Serious: No
  Sender: FDA-Public Use
  Company Number: US-PFIZER INC-2017033729

PATIENT
  Age: 23 Year
  Sex: Male
  Weight: 73 kg

DRUGS (1)
  1. VIAGRA [Suspect]
     Active Substance: SILDENAFIL CITRATE
     Indication: ERECTILE DYSFUNCTION
     Dosage: TABLET, ORALLY
     Route: 048
     Dates: start: 20170122

REACTIONS (3)
  - Feeling hot [Unknown]
  - Prescription drug used without a prescription [Unknown]
  - Suspected counterfeit product [Unknown]
